FAERS Safety Report 5131793-6 (Version None)
Quarter: 2006Q4

REPORT INFORMATION
  Report Type: 
  Country: None (occurrence: None)
  Receive Date: 20061016
  Receipt Date: 20061002
  Transmission Date: 20070319
  Serious: Yes (Other)
  Sender: FDA-Public Use
  Company Number: 2006119764

PATIENT
  Age: 39 Year
  Sex: Male

DRUGS (1)
  1. TRIFLUCAN (FLUCONAZOLE) [Suspect]
     Dosage: 100 MG (50 MG)

REACTIONS (1)
  - SYSTEMIC CANDIDA [None]
